FAERS Safety Report 17170366 (Version 1)
Quarter: 2019Q4

REPORT INFORMATION
  Report Type: Spontaneous
  Country: DE (occurrence: DE)
  Receive Date: 20191218
  Receipt Date: 20191218
  Transmission Date: 20200122
  Serious: Yes (Other)
  Sender: FDA-Public Use
  Company Number: DE-IBIGEN-2019.07815

PATIENT
  Age: 30 Year
  Sex: Female

DRUGS (2)
  1. PENICILLIN NOS [Suspect]
     Active Substance: PENICILLIN
  2. FLUCLOXACILLIN [Suspect]
     Active Substance: FLUCLOXACILLIN

REACTIONS (1)
  - Pathogen resistance [Unknown]
